FAERS Safety Report 24579826 (Version 1)
Quarter: 2024Q4

REPORT INFORMATION
  Report Type: Spontaneous
  Country: US (occurrence: US)
  Receive Date: 20241105
  Receipt Date: 20241105
  Transmission Date: 20250114
  Serious: Yes (Disabling, Other)
  Sender: BECTON DICKINSON
  Company Number: US-BECTON DICKINSON-US-BD-24-000633

PATIENT
  Sex: Male

DRUGS (2)
  1. CHLORAPREP [Suspect]
     Active Substance: CHLORHEXIDINE GLUCONATE\ISOPROPYL ALCOHOL
     Indication: Product used for unknown indication
     Dosage: UNK
     Route: 065
  2. CHLORAPREP WITH TINT [Suspect]
     Active Substance: CHLORHEXIDINE GLUCONATE\ISOPROPYL ALCOHOL
     Indication: Product used for unknown indication
     Dosage: UNK
     Route: 065

REACTIONS (4)
  - Injury [Unknown]
  - Disability [Unknown]
  - Deformity [Unknown]
  - Pain [Unknown]

NARRATIVE: CASE EVENT DATE: 20210601
